FAERS Safety Report 5104038-0 (Version None)
Quarter: 2006Q3

REPORT INFORMATION
  Report Type: 
  Country: None (occurrence: None)
  Receive Date: 20060911
  Receipt Date: 20060828
  Transmission Date: 20061208
  Serious: Yes (Death, Life-Threatening, Other)
  Sender: FDA-Public Use
  Company Number: 2006096733

PATIENT
  Age: 77 Year
  Sex: Male
  Weight: 42 kg

DRUGS (3)
  1. VFEND [Suspect]
     Indication: BRONCHOPULMONARY ASPERGILLOSIS
     Dosage: 400 MG, ORAL
     Route: 048
     Dates: start: 20060728, end: 20060803
  2. CEFOBID [Concomitant]
  3. POTACOL-R (CALCIUM CHLORIDE ANHYDROUS, MALTOSE, POTASSIUM CHLORIDE, SO [Concomitant]

REACTIONS (12)
  - BACTERIAL INFECTION [None]
  - BLOOD PRESSURE DECREASED [None]
  - BODY TEMPERATURE INCREASED [None]
  - BRONCHOPULMONARY ASPERGILLOSIS [None]
  - CONDITION AGGRAVATED [None]
  - DEHYDRATION [None]
  - HEART RATE DECREASED [None]
  - HYPERTHERMIA [None]
  - HYPOKALAEMIA [None]
  - ORAL INTAKE REDUCED [None]
  - PULMONARY OEDEMA [None]
  - RHABDOMYOLYSIS [None]
